FAERS Safety Report 6773055-7 (Version None)
Quarter: 2010Q2

REPORT INFORMATION
  Report Type: 
  Country: None (occurrence: None)
  Receive Date: 20100616
  Receipt Date: 20100604
  Transmission Date: 20101027
  Serious: Yes (Other)
  Sender: FDA-Public Use
  Company Number: JP-PFIZER INC-2010018986

PATIENT
  Age: 62 Year
  Sex: Male
  Weight: 64.1 kg

DRUGS (8)
  1. SUNITINIB MALATE [Suspect]
     Indication: RENAL CELL CARCINOMA
     Dosage: 50 MG, 1X/DAY
     Route: 048
     Dates: start: 20090812
  2. SAWACILLIN [Concomitant]
     Route: 048
     Dates: start: 20090904, end: 20090906
  3. ASPIRIN [Concomitant]
     Dosage: UNK
     Route: 048
  4. LIPITOR [Concomitant]
     Dosage: UNK
     Route: 048
  5. TIMOPTOL-XE [Concomitant]
     Dosage: UNK
     Route: 031
  6. TRUSOPT [Concomitant]
     Dosage: UNK
     Route: 031
  7. DETANTOL [Concomitant]
     Dosage: UNK
     Route: 031
  8. TRAVATAN [Concomitant]
     Dosage: UNK
     Route: 031

REACTIONS (3)
  - NEUTROPENIA [None]
  - THROMBOCYTOPENIA [None]
  - TOOTH ABSCESS [None]
